FAERS Safety Report 4432528-2 (Version None)
Quarter: 2004Q3

REPORT INFORMATION
  Report Type: 
  Country: None (occurrence: None)
  Receive Date: 20040820
  Receipt Date: 20040805
  Transmission Date: 20050211
  Serious: Yes (Hospitalization, Disabling)
  Sender: FDA-Public Use
  Company Number: 002#4#2003-00287

PATIENT
  Age: 62 Year
  Sex: Female

DRUGS (2)
  1. PPA/CPM-75/8 MG (OTC) (PHENYLPROPANOLAMINE HCL, CHLORPHENIRAMINE MALEA [Suspect]
     Dosage: ORAL
     Route: 048
  2. DEXATRIM-MAXIMUM-STRENGTH [Suspect]
     Dosage: ORAL
     Route: 048

REACTIONS (6)
  - BLOOD PRESSURE SYSTOLIC INCREASED [None]
  - CAROTID ARTERY OCCLUSION [None]
  - DEEP VEIN THROMBOSIS [None]
  - HAEMORRHAGIC STROKE [None]
  - PAIN IN EXTREMITY [None]
  - TRANSIENT ISCHAEMIC ATTACK [None]
